FAERS Safety Report 24119396 (Version 1)
Quarter: 2024Q3

REPORT INFORMATION
  Report Type: Other
  Country: CA (occurrence: CA)
  Receive Date: 20240722
  Receipt Date: 20240722
  Transmission Date: 20241016
  Serious: Yes (Disabling, Other)
  Sender: PFIZER
  Company Number: CA-PFIZER INC-202400218702

PATIENT
  Age: 6 Month
  Sex: Female

DRUGS (7)
  1. METHOTREXATE SODIUM [Suspect]
     Active Substance: METHOTREXATE SODIUM
     Indication: Atypical teratoid/rhabdoid tumour of CNS
     Dosage: 30 MG/M2
     Route: 037
  2. CYTARABINE [Suspect]
     Active Substance: CYTARABINE
     Indication: Atypical teratoid/rhabdoid tumour of CNS
     Dosage: 60 MG/M2
     Route: 037
  3. HYDROCORTISONE SODIUM SUCCINATE [Suspect]
     Active Substance: HYDROCORTISONE SODIUM SUCCINATE
     Indication: Atypical teratoid/rhabdoid tumour of CNS
     Dosage: 30 MG/M2
     Route: 037
  4. DOXORUBICIN HYDROCHLORIDE [Suspect]
     Active Substance: DOXORUBICIN HYDROCHLORIDE
     Indication: Atypical teratoid/rhabdoid tumour of CNS
     Route: 065
  5. DACTINOMYCIN [Suspect]
     Active Substance: DACTINOMYCIN
     Indication: Atypical teratoid/rhabdoid tumour of CNS
     Route: 065
  6. ETOPOSIDE [Suspect]
     Active Substance: ETOPOSIDE
     Indication: Atypical teratoid/rhabdoid tumour of CNS
     Route: 065
  7. ALISERTIB [Concomitant]
     Active Substance: ALISERTIB
     Indication: Atypical teratoid/rhabdoid tumour of CNS
     Dosage: 60 MG/M2
     Route: 048

REACTIONS (6)
  - Deafness [Recovered/Resolved]
  - Hemiparesis [Recovered/Resolved]
  - Speech disorder developmental [Recovered/Resolved]
  - Neoplasm progression [Recovered/Resolved]
  - Off label use [Unknown]
  - Off label use [Unknown]
